FAERS Safety Report 23108698 (Version 1)
Quarter: 2023Q4

REPORT INFORMATION
  Report Type: Report from Study
  Country: GB (occurrence: GB)
  Receive Date: 20231026
  Receipt Date: 20231026
  Transmission Date: 20240110
  Serious: Yes (Death, Disabling)
  Sender: FDA-Public Use
  Company Number: GB-BoehringerIngelheim-2018-BI-039534

PATIENT
  Age: 67 Year
  Sex: Female
  Weight: 73.1 kg

DRUGS (12)
  1. ALTEPLASE [Suspect]
     Active Substance: ALTEPLASE
     Indication: Ischaemic stroke
     Route: 042
     Dates: start: 20180722
  2. DIHYDROCODEINE [Concomitant]
     Active Substance: DIHYDROCODEINE
     Indication: Product used for unknown indication
     Dosage: ONGOING
     Route: 048
     Dates: start: 201801
  3. PERINDOPRIL [Concomitant]
     Active Substance: PERINDOPRIL
     Indication: Product used for unknown indication
     Dosage: ONGOING
     Route: 048
     Dates: start: 2018
  4. QUININE SULFATE [Concomitant]
     Active Substance: QUININE SULFATE
     Indication: Product used for unknown indication
     Dosage: ONGOING
     Route: 048
     Dates: start: 2018
  5. ACETAMINOPHEN [Concomitant]
     Active Substance: ACETAMINOPHEN
     Indication: Product used for unknown indication
     Dosage: ONGOING
     Route: 048
     Dates: start: 20180720
  6. SENNAE [Concomitant]
     Indication: Product used for unknown indication
     Dosage: ONGOING
     Route: 048
     Dates: start: 20180722
  7. ALBUTEROL [Concomitant]
     Active Substance: ALBUTEROL
     Indication: Product used for unknown indication
     Dosage: 2 PUFF?ONGOING
     Route: 055
     Dates: start: 20121018
  8. BUDESONIDE\FORMOTEROL FUMARATE [Concomitant]
     Active Substance: BUDESONIDE\FORMOTEROL FUMARATE
     Indication: Product used for unknown indication
     Dosage: 2 PUFF?ONGOING
     Route: 055
     Dates: start: 20121018
  9. SODIUM PHOSPHATE, MONOBASIC, ANHYDROUS [Concomitant]
     Active Substance: SODIUM PHOSPHATE, MONOBASIC, ANHYDROUS
     Indication: Product used for unknown indication
     Dosage: DOSE- 1 ?ONGOING
     Route: 048
     Dates: start: 20180723, end: 20180726
  10. CLOPIDOGREL [Concomitant]
     Active Substance: CLOPIDOGREL BISULFATE
     Indication: Product used for unknown indication
     Dosage: ONGOING
     Route: 048
     Dates: start: 20180724
  11. CLOPIDOGREL [Concomitant]
     Active Substance: CLOPIDOGREL BISULFATE
     Route: 048
     Dates: start: 20180723, end: 20180723
  12. AMITRIPTYLINE [Concomitant]
     Active Substance: AMITRIPTYLINE
     Indication: Product used for unknown indication
     Route: 048
     Dates: start: 2018

REACTIONS (2)
  - Cardiac arrest [Fatal]
  - Neurological decompensation [Recovered/Resolved with Sequelae]

NARRATIVE: CASE EVENT DATE: 20180723
